FAERS Safety Report 19929105 (Version 2)
Quarter: 2021Q4

REPORT INFORMATION
  Report Type: Spontaneous
  Country: US (occurrence: US)
  Receive Date: 20211007
  Receipt Date: 20211111
  Transmission Date: 20220304
  Serious: Yes (Hospitalization, Other)
  Sender: FDA-Public Use
  Company Number: US-TEVA-2021-US-1964267

PATIENT
  Age: 58 Year
  Sex: Female
  Weight: 136.07 kg

DRUGS (24)
  1. VALSARTAN [Suspect]
     Active Substance: VALSARTAN
     Indication: Hypertension
     Route: 048
     Dates: start: 20161109, end: 20170227
  2. VALSARTAN [Suspect]
     Active Substance: VALSARTAN
     Route: 048
     Dates: start: 20170630, end: 20170730
  3. VALSARTAN [Suspect]
     Active Substance: VALSARTAN
     Route: 048
  4. VALSARTAN [Suspect]
     Active Substance: VALSARTAN
     Route: 048
  5. DIOVAN [Suspect]
     Active Substance: VALSARTAN
     Indication: Hypertension
     Dosage: 80 MILLIGRAM DAILY;
     Route: 048
  6. HYDROCHLOROTHIAZIDE\VALSARTAN [Suspect]
     Active Substance: HYDROCHLOROTHIAZIDE\VALSARTAN
     Indication: Hypertension
     Route: 065
     Dates: start: 20160707, end: 20161020
  7. VALSARTAN [Suspect]
     Active Substance: VALSARTAN
     Indication: Hypertension
     Route: 065
     Dates: start: 20170724, end: 20171201
  8. PROVENTIL HFA [Concomitant]
     Active Substance: ALBUTEROL SULFATE
     Dosage: INHALE 2 PUFFS BY MOUTH EVERY 6 (SIX) HOURS AS NEEDED
     Route: 048
  9. VENTOLIN HFA [Concomitant]
     Active Substance: ALBUTEROL SULFATE
     Dosage: INHALE 2 PUFFS BY MOUTH EVERY 6 (SIX) HOURS AS NEEDED
     Route: 048
  10. XANAX [Concomitant]
     Active Substance: ALPRAZOLAM
     Indication: Anxiety
     Dosage: 1.5 MILLIGRAM DAILY; TAKE 0.5 MG BY MOUTH 3 (THREE) TIMES A DAY
     Route: 048
  11. NORVASC [Concomitant]
     Active Substance: AMLODIPINE BESYLATE
     Route: 048
  12. LASIX [Concomitant]
     Active Substance: FUROSEMIDE
     Dosage: TAKE 1 TABLET (20 MG) BY MOUTH 2(TWO) TIMES A DAY
     Route: 048
  13. HYDROCORTISONE [Concomitant]
     Active Substance: HYDROCORTISONE
     Dosage: APPLY 1 APPLICATION TOPICALLY AS NEEDED
     Route: 061
  14. CHRONULAC [Concomitant]
     Active Substance: LACTULOSE
     Dosage: 10 ML DAILY; 10G/15ML SOLUTION
     Route: 048
  15. ATIVAN [Concomitant]
     Active Substance: LORAZEPAM
     Route: 048
  16. COZAAR [Concomitant]
     Active Substance: LOSARTAN POTASSIUM
     Route: 048
  17. ANTIVERT [Concomitant]
     Active Substance: MECLIZINE HYDROCHLORIDE
     Route: 048
  18. METHADONE [Concomitant]
     Active Substance: METHADONE HYDROCHLORIDE
     Indication: Pain
     Dosage: TAKE 110 MG BY MOUTH DAILY
     Route: 048
  19. Mycolog II [Concomitant]
     Route: 061
  20. PRILOSEC [Concomitant]
     Active Substance: OMEPRAZOLE MAGNESIUM
     Route: 048
  21. PERCOCET [Concomitant]
     Active Substance: ACETAMINOPHEN\OXYCODONE HYDROCHLORIDE
     Dosage: 10-325 MG, 1 EVERY 6 (SIX) HOURS AS NEEDED
     Route: 048
  22. SENOKOT [Concomitant]
     Active Substance: SENNOSIDES
     Route: 048
  23. AMBIEN [Concomitant]
     Active Substance: ZOLPIDEM TARTRATE
     Dosage: NIGHTLY
     Route: 048
  24. LOSARTAN [Concomitant]
     Active Substance: LOSARTAN
     Indication: Hypertension
     Route: 065

REACTIONS (1)
  - Hepatocellular carcinoma [Recovered/Resolved]
